FAERS Safety Report 6337366-1 (Version None)
Quarter: 2009Q3

REPORT INFORMATION
  Report Type: 
  Country: None (occurrence: None)
  Receive Date: 20090902
  Receipt Date: 20071213
  Transmission Date: 20100115
  Serious: Yes (Other)
  Sender: FDA-Public Use
  Company Number: US-ASTRAZENECA-2006UW26581

PATIENT
  Age: 21818 Day
  Sex: Female
  Weight: 91.2 kg

DRUGS (11)
  1. SEROQUEL [Suspect]
     Indication: SLEEP DISORDER
     Route: 048
     Dates: start: 20050201, end: 20060201
  2. SEROQUEL [Suspect]
     Indication: INSOMNIA
     Route: 048
     Dates: start: 20050201, end: 20060201
  3. SEROQUEL [Suspect]
     Route: 048
     Dates: start: 20050627
  4. SEROQUEL [Suspect]
     Route: 048
     Dates: start: 20050627
  5. PAXIL [Concomitant]
  6. ELAVIL [Concomitant]
  7. TOPAMAX [Concomitant]
     Dosage: 50-100 MG
     Dates: start: 20050330
  8. VERAPAMIL [Concomitant]
     Indication: HYPERTENSION
     Dosage: 120-150 MG
     Dates: start: 20050330
  9. ZOCOR [Concomitant]
     Dates: start: 20050217
  10. GLIPIZIDE [Concomitant]
     Dates: start: 20050217
  11. HYDROCHLOROTHIAZIDE [Concomitant]
     Dates: start: 20050217

REACTIONS (4)
  - DIABETES MELLITUS [None]
  - DIABETIC NEUROPATHY [None]
  - NEUROPATHY PERIPHERAL [None]
  - PANCREATITIS [None]
